FAERS Safety Report 11429367 (Version 1)
Quarter: 2015Q3

REPORT INFORMATION
  Report Type: Spontaneous
  Country: US (occurrence: US)
  Receive Date: 20150828
  Receipt Date: 20150828
  Transmission Date: 20151125
  Serious: No
  Sender: FDA-Public Use
  Company Number: US-ROCHE-1176339

PATIENT
  Sex: Male

DRUGS (5)
  1. RIBASPHERE [Suspect]
     Active Substance: RIBAVIRIN
     Indication: CHRONIC HEPATITIS C
     Dosage: FOR A 48-WEEK LENGTH OF THERAPY (DIVIDED DOSE)
     Route: 048
     Dates: start: 20121005, end: 20121227
  2. PEGASYS [Suspect]
     Active Substance: PEGINTERFERON ALFA-2A
     Dosage: COPMPLETED 48 WEEKS THERAPY
     Route: 058
     Dates: start: 20121005, end: 20121227
  3. INCIVEK [Suspect]
     Active Substance: TELAPREVIR
     Indication: CHRONIC HEPATITIS C
     Dosage: FOR A 48-WEEK LENGTH OF THERAPY
     Route: 065
     Dates: start: 20121005, end: 20121227
  4. RIBAVIRIN. [Suspect]
     Active Substance: RIBAVIRIN
     Indication: CHRONIC HEPATITIS C
     Dosage: COMPLETED 48 WEEKS COURSE OF THERAPY
     Route: 065
     Dates: end: 2008
  5. PEGASYS [Suspect]
     Active Substance: PEGINTERFERON ALFA-2A
     Indication: CHRONIC HEPATITIS C
     Dosage: COMPLETED 48-WEEK COURSE OF THERAPY
     Route: 065
     Dates: end: 2008

REACTIONS (1)
  - Hepatitis C [Unknown]
